FAERS Safety Report 5331081-9 (Version None)
Quarter: 2007Q2

REPORT INFORMATION
  Report Type: 
  Country: None (occurrence: None)
  Receive Date: 20070517
  Receipt Date: 20060727
  Transmission Date: 20071010
  Serious: Yes (Hospitalization, Other)
  Sender: FDA-Public Use
  Company Number: TKT01200600094

PATIENT
  Age: 7 Year
  Sex: Male
  Weight: 26.5 kg

DRUGS (3)
  1. IDURSULFASE (IDURSULFASE) (0.5 MILLIGRAM (S) / KILOGRAM, CONCENTRATE [Suspect]
     Indication: MUCOPOLYSACCHARIDOSIS II
     Dosage: SEE IMAGE
     Route: 041
     Dates: start: 20040216
  2. IDURSULFASE (IDURSULFASE) (0.5 MILLIGRAM (S) / KILOGRAM, CONCENTRATE [Suspect]
     Indication: MUCOPOLYSACCHARIDOSIS II
     Dosage: SEE IMAGE
     Route: 041
     Dates: start: 20050223
  3. RISPERIDONE [Concomitant]

REACTIONS (8)
  - CATHETER SITE INFECTION [None]
  - ENTEROBACTER BACTERAEMIA [None]
  - FACE OEDEMA [None]
  - HYPERTENSION [None]
  - INSOMNIA [None]
  - RESPIRATORY RATE INCREASED [None]
  - STAPHYLOCOCCAL BACTERAEMIA [None]
  - TREMOR [None]
